FAERS Safety Report 17554207 (Version 9)
Quarter: 2020Q4

REPORT INFORMATION
  Report Type: Spontaneous
  Country: CA (occurrence: CA)
  Receive Date: 20200318
  Receipt Date: 20201023
  Transmission Date: 20210113
  Serious: Yes (Other)
  Sender: FDA-Public Use
  Company Number: CA-PFIZER INC-2020099714

PATIENT
  Age: 58 Year
  Sex: Female

DRUGS (8)
  1. METHOTREXATE. [Concomitant]
     Active Substance: METHOTREXATE
     Dosage: 25 MG, WEEKLY
  2. PANTOPRAZOLE [Concomitant]
     Active Substance: PANTOPRAZOLE
     Dosage: UNK
  3. PREGABALIN. [Concomitant]
     Active Substance: PREGABALIN
     Dosage: 3 DF, DAILY (1 PILL AM AND 2 PILLS HS)
  4. ASACOL [Concomitant]
     Active Substance: MESALAMINE
     Dosage: UNK
  5. XELJANZ [Suspect]
     Active Substance: TOFACITINIB CITRATE
     Indication: COLITIS ULCERATIVE
     Dosage: 10 MG, 2X/DAY
     Route: 048
     Dates: start: 20200221, end: 202007
  6. JAMP ASA [Concomitant]
     Active Substance: ASPIRIN
     Dosage: UNK
  7. VITAMIN D [COLECALCIFEROL] [Concomitant]
     Active Substance: CHOLECALCIFEROL
     Dosage: UNK
  8. FOLIC ACID. [Concomitant]
     Active Substance: FOLIC ACID
     Dosage: UNK

REACTIONS (25)
  - Nausea [Not Recovered/Not Resolved]
  - Weight decreased [Unknown]
  - Headache [Recovering/Resolving]
  - Somnolence [Unknown]
  - Fistula [Unknown]
  - Lymphadenopathy [Unknown]
  - Herpes zoster [Recovering/Resolving]
  - Pulmonary mass [Unknown]
  - Burning sensation [Unknown]
  - Decreased appetite [Unknown]
  - Wound [Recovering/Resolving]
  - Asthenia [Unknown]
  - Peripheral coldness [Unknown]
  - Pain [Not Recovered/Not Resolved]
  - Dyspnoea [Unknown]
  - Malaise [Unknown]
  - Abdominal pain [Unknown]
  - Pollakiuria [Unknown]
  - Fatigue [Unknown]
  - Haematochezia [Unknown]
  - Red blood cell sedimentation rate increased [Unknown]
  - Thyroid cancer [Unknown]
  - Condition aggravated [Unknown]
  - Vomiting [Unknown]
  - Goitre [Unknown]

NARRATIVE: CASE EVENT DATE: 20200705
